FAERS Safety Report 6825531-6 (Version None)
Quarter: 2010Q3

REPORT INFORMATION
  Report Type: 
  Country: None (occurrence: None)
  Receive Date: 20100708
  Receipt Date: 20061201
  Transmission Date: 20110219
  Serious: No
  Sender: FDA-Public Use
  Company Number: US-PFIZER INC-2006151946

PATIENT
  Sex: Female
  Weight: 68 kg

DRUGS (12)
  1. CHANTIX [Suspect]
     Indication: SMOKING CESSATION THERAPY
     Dates: start: 20061010
  2. ELAVIL [Concomitant]
  3. THYROID TAB [Concomitant]
     Indication: HYPOTHYROIDISM
  4. BACLOFEN [Concomitant]
  5. LASIX [Concomitant]
  6. STRATTERA [Concomitant]
  7. AMINOPHYLLINE [Concomitant]
  8. TRICOR [Concomitant]
  9. EVISTA [Concomitant]
  10. PRILOSEC [Concomitant]
  11. LORTAB [Concomitant]
     Indication: BACK DISORDER
  12. METHADONE [Concomitant]
     Indication: BACK DISORDER

REACTIONS (1)
  - DRUG INEFFECTIVE [None]
